FAERS Safety Report 9468667 (Version 1)
Quarter: 2013Q3

REPORT INFORMATION
  Report Type: Spontaneous
  Country: US (occurrence: None)
  Receive Date: 20130814
  Receipt Date: 20130814
  Transmission Date: 20140515
  Serious: Yes (Hospitalization)
  Sender: FDA-Public Use
  Company Number: 2013-3284

PATIENT
  Age: 59 Year
  Sex: Female
  Weight: 52 kg

DRUGS (5)
  1. DYSPORT (BOTULINUM TOXIN TYPE A) (BOTULINUM TOXIN TYPE A) [Suspect]
     Indication: SKIN WRINKLING
     Dates: start: 20130719, end: 20130719
  2. RESTYLANE OR JUVEDERM (HYALURONIC ACID) [Concomitant]
  3. SULFASALAZINE (SULFASALAZINE) [Concomitant]
  4. LISINOPRIL (LISINOPRIL) [Concomitant]
  5. WELLBUTRIN (BUPROPION) [Concomitant]

REACTIONS (5)
  - Vision blurred [None]
  - Altered visual depth perception [None]
  - Diplopia [None]
  - Sinus headache [None]
  - Malaise [None]
